FAERS Safety Report 7018124-1 (Version None)
Quarter: 2010Q3

REPORT INFORMATION
  Report Type: 
  Country: None (occurrence: None)
  Receive Date: 20100928
  Receipt Date: 20100917
  Transmission Date: 20110219
  Serious: Yes (Death)
  Sender: FDA-Public Use
  Company Number: US-GENZYME-CLOF-1001115

PATIENT
  Sex: Male
  Weight: 61.224 kg

DRUGS (6)
  1. CLOLAR [Suspect]
     Indication: MYELODYSPLASTIC SYNDROME
     Dosage: 26 MG, QDX4
     Route: 042
     Dates: start: 20100720, end: 20100723
  2. FOLIC ACID [Concomitant]
     Indication: PRODUCT USED FOR UNKNOWN INDICATION
  3. OMEPRAZOLE [Concomitant]
     Indication: PRODUCT USED FOR UNKNOWN INDICATION
  4. PROZAC [Concomitant]
     Indication: PRODUCT USED FOR UNKNOWN INDICATION
  5. CARDIZEM [Concomitant]
     Indication: PRODUCT USED FOR UNKNOWN INDICATION
  6. TOPROL-XL [Concomitant]
     Indication: PRODUCT USED FOR UNKNOWN INDICATION

REACTIONS (2)
  - PANCYTOPENIA [None]
  - SEPSIS [None]
